FAERS Safety Report 5490740-8 (Version None)
Quarter: 2007Q4

REPORT INFORMATION
  Report Type: 
  Country: None (occurrence: None)
  Receive Date: 20071019
  Receipt Date: 20071015
  Transmission Date: 20080405
  Serious: Yes (Other)
  Sender: FDA-Public Use
  Company Number: B0491479A

PATIENT
  Age: 14 Year
  Sex: Female

DRUGS (1)
  1. VENTOLIN [Suspect]
     Indication: INTENTIONAL DRUG MISUSE
     Dosage: 10PUFF SINGLE DOSE
     Route: 061
     Dates: start: 20071001

REACTIONS (4)
  - BURNS SECOND DEGREE [None]
  - DRUG ADMINISTERED AT INAPPROPRIATE SITE [None]
  - INTENTIONAL DRUG MISUSE [None]
  - WRONG DRUG ADMINISTERED [None]
